FAERS Safety Report 7908935-X (Version None)
Quarter: 2011Q4

REPORT INFORMATION
  Report Type: 
  Country: None (occurrence: None)
  Receive Date: 20111110
  Receipt Date: 20111110
  Transmission Date: 20120403
  Serious: Yes (Hospitalization)
  Sender: FDA-Public Use
  Company Number: None

PATIENT
  Age: 64 Year
  Sex: Male
  Weight: 86 kg

DRUGS (1)
  1. TEMAZEPAM [Suspect]
     Indication: SOMNOLENCE
     Dosage: 15 MG, HS, PO
     Route: 048
     Dates: start: 20110929, end: 20111103

REACTIONS (3)
  - INJURY [None]
  - SYNCOPE [None]
  - FALL [None]
